FAERS Safety Report 10215190 (Version 1)
Quarter: 2014Q2

REPORT INFORMATION
  Report Type: Spontaneous
  Country: US (occurrence: US)
  Receive Date: 20140603
  Receipt Date: 20140603
  Transmission Date: 20141212
  Serious: Yes (Death)
  Sender: FDA-Public Use
  Company Number: CHPA2014US007487

PATIENT
  Age: 83 Year
  Sex: Male

DRUGS (1)
  1. NODOZ [Suspect]
     Route: 048

REACTIONS (1)
  - Death [Fatal]
